FAERS Safety Report 24534647 (Version 1)
Quarter: 2024Q4

REPORT INFORMATION
  Report Type: Report from Study
  Country: ES (occurrence: ES)
  Receive Date: 20241022
  Receipt Date: 20241022
  Transmission Date: 20250115
  Serious: Yes (Other)
  Sender: UCB
  Company Number: ES-UCBSA-2020030272

PATIENT
  Sex: Female

DRUGS (1)
  1. LEVETIRACETAM [Suspect]
     Active Substance: LEVETIRACETAM
     Indication: Epilepsy
     Dosage: UNKNOWN DOSE

REACTIONS (2)
  - Seizure [Unknown]
  - Maternal exposure before pregnancy [Unknown]
